FAERS Safety Report 8111927-1 (Version None)
Quarter: 2012Q1

REPORT INFORMATION
  Report Type: 
  Country: None (occurrence: None)
  Receive Date: 20120203
  Receipt Date: 20110512
  Transmission Date: 20120608
  Serious: No
  Sender: FDA-Public Use
  Company Number: US-GLAXOSMITHKLINE-A0927150A

PATIENT
  Age: 56 Year
  Sex: Female

DRUGS (3)
  1. ARIXTRA [Suspect]
     Indication: DEEP VEIN THROMBOSIS
     Dosage: 10MG PER DAY
     Route: 058
     Dates: start: 20110301
  2. ACETAMINOPHEN [Concomitant]
  3. ONDANSETRON HCL [Concomitant]

REACTIONS (3)
  - INJECTION SITE PAIN [None]
  - INJECTION SITE ERYTHEMA [None]
  - PRODUCT QUALITY ISSUE [None]
